FAERS Safety Report 22124570 (Version 2)
Quarter: 2025Q3

REPORT INFORMATION
  Report Type: Spontaneous
  Country: US (occurrence: US)
  Receive Date: 20230322
  Receipt Date: 20250911
  Transmission Date: 20251021
  Serious: No
  Sender: PFIZER
  Company Number: US-PFIZER INC-PV202200098200

PATIENT
  Age: 37 Year
  Sex: Female
  Weight: 129.27 kg

DRUGS (1)
  1. XELJANZ XR [Suspect]
     Active Substance: TOFACITINIB CITRATE
     Indication: Psoriatic arthropathy
     Route: 048
     Dates: start: 20200201

REACTIONS (5)
  - Condition aggravated [Unknown]
  - Anaemia [Unknown]
  - Vitamin B12 abnormal [Unknown]
  - Blood calcium abnormal [Unknown]
  - Metabolic function test abnormal [Unknown]
